APPROVED DRUG PRODUCT: DIABETA
Active Ingredient: GLYBURIDE
Strength: 5MG
Dosage Form/Route: TABLET;ORAL
Application: N017532 | Product #003 | TE Code: AB2
Applicant: SANOFI AVENTIS US LLC
Approved: May 1, 1984 | RLD: Yes | RS: Yes | Type: RX